FAERS Safety Report 9727543 (Version 1)
Quarter: 2013Q4

REPORT INFORMATION
  Report Type: Spontaneous
  Country: ZA (occurrence: ZA)
  Receive Date: 20131203
  Receipt Date: 20131203
  Transmission Date: 20140711
  Serious: Yes (Other)
  Sender: FDA-Public Use
  Company Number: ZA-ABBVIE-13P-143-1175570-00

PATIENT
  Age: 10 Year
  Sex: Male

DRUGS (3)
  1. EPILIM [Suspect]
     Indication: PRODUCT USED FOR UNKNOWN INDICATION
     Route: 048
     Dates: start: 2009
  2. EPILIM [Interacting]
     Route: 048
  3. PHENOBARBITAL [Interacting]
     Indication: INSOMNIA

REACTIONS (3)
  - Convulsion [Recovered/Resolved]
  - Drug level increased [Unknown]
  - Drug interaction [Unknown]
